FAERS Safety Report 11082294 (Version 6)
Quarter: 2015Q3

REPORT INFORMATION
  Report Type: Spontaneous
  Country: US (occurrence: US)
  Receive Date: 20150501
  Receipt Date: 20150707
  Transmission Date: 20151125
  Serious: Yes (Other)
  Sender: FDA-Public Use
  Company Number: US-PFIZER INC-2015142727

PATIENT
  Age: 50 Year
  Sex: Female

DRUGS (5)
  1. XALATAN [Suspect]
     Active Substance: LATANOPROST
     Dosage: 1 GTT, 1X/DAY (BEDTIME)
     Route: 047
     Dates: start: 20150324, end: 20150519
  2. XALATAN [Suspect]
     Active Substance: LATANOPROST
     Indication: ANGLE CLOSURE GLAUCOMA
     Dosage: UNK UNK, 2X/DAY
     Dates: start: 201502, end: 201504
  3. SIMBRINZA [Suspect]
     Active Substance: BRIMONIDINE TARTRATE\BRINZOLAMIDE
     Dosage: UNK
  4. PRAZOLAMINE [Concomitant]
     Active Substance: .GAMMA.-AMINOBUTYRIC ACID\CARISOPRODOL
     Dosage: UNK
  5. TRAVATAN [Suspect]
     Active Substance: TRAVOPROST
     Dosage: UNK

REACTIONS (4)
  - Vision blurred [Recovered/Resolved]
  - Drug hypersensitivity [Recovered/Resolved]
  - Ocular hyperaemia [Recovered/Resolved]
  - Drug hypersensitivity [Unknown]

NARRATIVE: CASE EVENT DATE: 201502
